FAERS Safety Report 7879099-6 (Version None)
Quarter: 2011Q4

REPORT INFORMATION
  Report Type: 
  Country: None (occurrence: None)
  Receive Date: 20111101
  Receipt Date: 20111027
  Transmission Date: 20120403
  Serious: No
  Sender: FDA-Public Use
  Company Number: PHEH2011US07984

PATIENT
  Sex: Female
  Weight: 68.027 kg

DRUGS (7)
  1. PROZAC [Concomitant]
  2. CLONAZEPAM [Concomitant]
  3. FLUOXETINE HCL [Concomitant]
  4. NAPROXEN [Concomitant]
  5. MULTI-VITAMINS [Concomitant]
  6. TASIGNA [Suspect]
     Indication: ACUTE MYELOID LEUKAEMIA
     Dosage: 400 MG, QD
     Route: 048
     Dates: start: 20100303
  7. SOMA [Concomitant]

REACTIONS (2)
  - FLATULENCE [None]
  - ABDOMINAL PAIN UPPER [None]
